FAERS Safety Report 25148082 (Version 1)
Quarter: 2025Q2

REPORT INFORMATION
  Report Type: Spontaneous
  Country: FR (occurrence: FR)
  Receive Date: 20250402
  Receipt Date: 20250402
  Transmission Date: 20250717
  Serious: Yes (Hospitalization, Other)
  Sender: ALEXION PHARMACEUTICALS
  Company Number: FR-SA-2024SA337789

PATIENT
  Age: 2 Month
  Weight: 7.5 kg

DRUGS (3)
  1. NIRSEVIMAB [Suspect]
     Active Substance: NIRSEVIMAB
     Route: 065
  2. PREVNAR 13 [Concomitant]
     Active Substance: STREPTOCOCCUS PNEUMONIAE TYPE 1 CAPSULAR POLYSACCHARIDE DIPHTHERIA CRM197 PROTEIN CONJUGATE ANTIGEN\
     Indication: Immunisation
     Route: 065
  3. VAXELIS [Concomitant]
     Active Substance: DIPHTHERIA AND TETANUS TOXOIDS AND ACELLULAR PERTUSSIS ADSORBED, INACTIVATED POLIOVIRUS AND HAEMOPHI
     Indication: Immunisation
     Route: 065

REACTIONS (14)
  - Respiratory syncytial virus bronchiolitis [Unknown]
  - Respiratory syncytial virus bronchiolitis [Unknown]
  - Rhinitis [Unknown]
  - Respiratory distress [Recovering/Resolving]
  - Cough [Unknown]
  - Wheezing [Unknown]
  - Hemiclonic seizure [Recovered/Resolved]
  - Dry skin [Unknown]
  - Ear congestion [Unknown]
  - Tachypnoea [Unknown]
  - Use of accessory respiratory muscles [Unknown]
  - Flail chest [Unknown]
  - Nasal congestion [Unknown]
  - Respiratory tract congestion [Unknown]
